FAERS Safety Report 7623251-1 (Version None)
Quarter: 2011Q3

REPORT INFORMATION
  Report Type: 
  Country: None (occurrence: None)
  Receive Date: 20110720
  Receipt Date: 20110705
  Transmission Date: 20111222
  Serious: Yes (Other)
  Sender: FDA-Public Use
  Company Number: AU-JNJFOC-20110702092

PATIENT
  Sex: Female

DRUGS (15)
  1. VYTORIN [Concomitant]
     Dosage: VYTORIN 10/80 TABS
  2. CELESTONA [Concomitant]
  3. MINAX [Concomitant]
  4. PREMARIN [Concomitant]
  5. METHOTREXATE [Suspect]
     Indication: PRODUCT USED FOR UNKNOWN INDICATION
  6. RANI [Concomitant]
  7. CARIAX [Concomitant]
  8. MICARDIS [Concomitant]
  9. NORVASC [Concomitant]
  10. DIMIREL [Concomitant]
  11. RABEPRAZOLE SODIUM [Concomitant]
  12. REMICADE [Suspect]
     Indication: PSORIASIS
     Route: 042
     Dates: start: 20081008
  13. REMICADE [Suspect]
     Route: 042
     Dates: start: 20110510
  14. TEMAZE [Concomitant]
     Dosage: 1-2 AT NIGHT
  15. METFORMIN HCL [Concomitant]

REACTIONS (3)
  - MOUTH ULCERATION [None]
  - DYSPNOEA [None]
  - FATIGUE [None]
